FAERS Safety Report 21629442 (Version 1)
Quarter: 2022Q4

REPORT INFORMATION
  Report Type: Spontaneous
  Country: CA (occurrence: None)
  Receive Date: 20221122
  Receipt Date: 20221122
  Transmission Date: 20230113
  Serious: Yes (Hospitalization, Other)
  Sender: FDA-Public Use
  Company Number: 2021A809127

PATIENT
  Age: 62 Year
  Sex: Female
  Weight: 60.3 kg

DRUGS (11)
  1. ROSUVASTATIN CALCIUM [Suspect]
     Active Substance: ROSUVASTATIN CALCIUM
     Indication: Dyslipidaemia
     Dosage: 20.0 MILLIGRAM
     Route: 048
     Dates: start: 20210406, end: 20210512
  2. ENTYVIO [Suspect]
     Active Substance: VEDOLIZUMAB
     Indication: Colitis ulcerative
     Dosage: 300.0 MILLIGRAM
     Route: 042
  3. ENTYVIO [Suspect]
     Active Substance: VEDOLIZUMAB
     Indication: Colitis ulcerative
     Dosage: 300.0 MILLIGRAM,1 EVERY 4WEEKS
     Route: 042
     Dates: start: 20200709
  4. CALCIUM GLUCONATE [Concomitant]
     Active Substance: CALCIUM GLUCONATE
     Dosage: 1 EVERY 1 DAYS
     Route: 065
  5. LEVOTHYROXINE SODIUM [Concomitant]
     Active Substance: LEVOTHYROXINE SODIUM
     Route: 065
  6. LUMIGAN [Concomitant]
     Active Substance: BIMATOPROST
     Dosage: 1 EVERY 1 DAYS
     Route: 065
  7. NADOLOL [Concomitant]
     Active Substance: NADOLOL
     Dosage: 40.0 MILLIGRAM
     Route: 065
     Dates: start: 202101
  8. PREDNISONE [Concomitant]
     Active Substance: PREDNISONE
     Dosage: 5.0 MILLIGRAM
     Route: 065
  9. PREDNISONE [Concomitant]
     Active Substance: PREDNISONE
     Dosage: 40.0 MILLIGRAM
     Route: 065
  10. SYNTHROID [Concomitant]
     Active Substance: LEVOTHYROXINE SODIUM
     Dosage: 112.0 MICROGRAM
     Route: 065
  11. VITAMIN D3 [Concomitant]
     Active Substance: CHOLECALCIFEROL
     Dosage: 1 EVERY 1 DAYS
     Route: 065

REACTIONS (12)
  - Ascites [Unknown]
  - Chest discomfort [Unknown]
  - Dyslipidaemia [Unknown]
  - Dyspnoea [Unknown]
  - Hepatic cirrhosis [Unknown]
  - Hepatitis acute [Unknown]
  - Hyperplastic cholecystopathy [Unknown]
  - Pleural effusion [Unknown]
  - Splenomegaly [Unknown]
  - Thyroiditis [Unknown]
  - Wheezing [Unknown]
  - Off label use [Unknown]

NARRATIVE: CASE EVENT DATE: 20200709
